FAERS Safety Report 24419573 (Version 9)
Quarter: 2025Q3

REPORT INFORMATION
  Report Type: Spontaneous
  Country: EU (occurrence: EU)
  Receive Date: 20241010
  Receipt Date: 20250731
  Transmission Date: 20251020
  Serious: Yes (Other)
  Sender: SANDOZ
  Company Number: EU-SA-2019SA351822

PATIENT
  Age: 6 Year
  Sex: Female

DRUGS (29)
  1. ALEMTUZUMAB [Suspect]
     Active Substance: ALEMTUZUMAB
     Indication: Sickle cell disease
     Dosage: 0.4 MG/KG, 2 DOSAGES 0.2 MG/KG DAILY (DAYS -9 TO -8) MG/KG
     Route: 065
  2. ALEMTUZUMAB [Suspect]
     Active Substance: ALEMTUZUMAB
     Indication: Bone marrow conditioning regimen
     Route: 065
  3. ALEMTUZUMAB [Suspect]
     Active Substance: ALEMTUZUMAB
     Indication: Bone marrow conditioning regimen
     Route: 065
  4. ALEMTUZUMAB [Suspect]
     Active Substance: ALEMTUZUMAB
     Indication: Prophylaxis against transplant rejection
  5. CYCLOPHOSPHAMIDE [Suspect]
     Active Substance: CYCLOPHOSPHAMIDE
     Indication: Sickle cell disease
     Dosage: 29 MG/KG,2 DOSAGES 14.5 MG/KG DAILY MG/KG (DAYS  -3 TO -2)
     Route: 065
  6. CYCLOPHOSPHAMIDE [Suspect]
     Active Substance: CYCLOPHOSPHAMIDE
     Indication: Bone marrow conditioning regimen
     Dosage: 50 MG/KG, QD( ON DAYS 3 AND 4)
     Route: 065
  7. CYCLOPHOSPHAMIDE [Suspect]
     Active Substance: CYCLOPHOSPHAMIDE
     Indication: Prophylaxis against graft versus host disease
     Dosage: 2X14.5 MG/KG, 2 DOSAGES14.5 MG/KG, QD (DAYS -3 TO -2) MG/KG
     Route: 065
  8. CYCLOPHOSPHAMIDE [Suspect]
     Active Substance: CYCLOPHOSPHAMIDE
     Indication: Prophylaxis against transplant rejection
  9. FLUDARABINE PHOSPHATE [Suspect]
     Active Substance: FLUDARABINE PHOSPHATE
     Indication: Bone marrow conditioning regimen
     Dosage: 150 MG/M2,5 X 30 MG/M2/D
     Route: 065
  10. FLUDARABINE PHOSPHATE [Suspect]
     Active Substance: FLUDARABINE PHOSPHATE
     Indication: Prophylaxis against transplant rejection
     Dosage: 30MG/M2, 5 X 30 MG/M2/D ((DAYS -7 TO -3))
     Route: 065
  11. FLUDARABINE PHOSPHATE [Suspect]
     Active Substance: FLUDARABINE PHOSPHATE
     Indication: Bone marrow conditioning regimen
     Route: 065
  12. FLUDARABINE PHOSPHATE [Suspect]
     Active Substance: FLUDARABINE PHOSPHATE
     Indication: Sickle cell disease
     Route: 065
  13. GRANULOCYTE COLONY-STIMULATING FACTOR NOS [Suspect]
     Active Substance: GRANULOCYTE COLONY-STIMULATING FACTOR NOS
     Indication: Prophylaxis against graft versus host disease
     Dosage: 5 UG/KG, QD
     Route: 065
  14. LENOGRASTIM [Suspect]
     Active Substance: LENOGRASTIM
     Indication: Prophylaxis against graft versus host disease
     Route: 065
  15. MYCOPHENOLATE MOFETIL [Suspect]
     Active Substance: MYCOPHENOLATE MOFETIL
     Route: 065
  16. MYCOPHENOLATE MOFETIL [Suspect]
     Active Substance: MYCOPHENOLATE MOFETIL
     Indication: Prophylaxis against graft versus host disease
     Dosage: UNK UNK, QD, 3X15MG/KG/DAY (DAYS+5  TO +35); UNKNOWN
     Route: 065
  17. MYCOPHENOLATE MOFETIL [Suspect]
     Active Substance: MYCOPHENOLATE MOFETIL
     Indication: Prophylaxis against transplant rejection
     Dosage: 15 MG/KG, TID (DAYS +5 TO +35) MG/KG
     Route: 065
  18. TACROLIMUS [Suspect]
     Active Substance: TACROLIMUS
     Indication: Prophylaxis against graft versus host disease
     Route: 065
  19. TACROLIMUS [Suspect]
     Active Substance: TACROLIMUS
     Indication: Prophylaxis against transplant rejection
     Route: 065
  20. TACROLIMUS [Suspect]
     Active Substance: TACROLIMUS
     Route: 065
  21. THIOTEPA [Suspect]
     Active Substance: THIOTEPA
     Indication: Bone marrow conditioning regimen
     Dosage: 5 MG/KG,2 X 5 MG/KG, BID (DAY -4)
     Route: 065
  22. THIOTEPA [Suspect]
     Active Substance: THIOTEPA
     Indication: Sickle cell disease
     Dosage: 10 MG/KG, 2 DOSAGES 5 MG/KG; BID DAY 4 MG/KG
     Route: 065
  23. THIOTEPA [Suspect]
     Active Substance: THIOTEPA
     Indication: Bone marrow conditioning regimen
     Route: 065
  24. THIOTEPA [Suspect]
     Active Substance: THIOTEPA
     Indication: Prophylaxis against transplant rejection
     Route: 065
  25. THIOTEPA [Suspect]
     Active Substance: THIOTEPA
     Route: 065
  26. TREOSULFAN [Suspect]
     Active Substance: TREOSULFAN
     Indication: Bone marrow conditioning regimen
     Dosage: 14 G/M2, QD (DAYS -7 TO -5)
     Route: 065
  27. TREOSULFAN [Suspect]
     Active Substance: TREOSULFAN
     Indication: Sickle cell disease
     Dosage: 42000MG/M2,3 DOSAGES 14000 MG/M2 DAILY (DAYS 7 TO 5))
     Route: 065
  28. TREOSULFAN [Suspect]
     Active Substance: TREOSULFAN
     Indication: Prophylaxis against transplant rejection
     Dosage: UNK UNK, QD, 3X14 G/M2/DAY (DAYS -7  TO -5)
     Route: 065
  29. TREOSULFAN [Suspect]
     Active Substance: TREOSULFAN
     Indication: Bone marrow conditioning regimen

REACTIONS (9)
  - Staphylococcal infection [Unknown]
  - Pseudomonas infection [Unknown]
  - Cytomegalovirus infection reactivation [Unknown]
  - Parotitis [Unknown]
  - Pseudomonas infection [Unknown]
  - Haematological infection [Unknown]
  - Off label use [Unknown]
  - Off label use [Unknown]
  - Parotitis [Unknown]
